FAERS Safety Report 10006444 (Version 2)
Quarter: 2014Q1

REPORT INFORMATION
  Report Type: Report from Study
  Country: FR (occurrence: FR)
  Receive Date: 20140313
  Receipt Date: 20140313
  Transmission Date: 20141002
  Serious: Yes (Hospitalization)
  Sender: FDA-Public Use
  Company Number: FR-MERCK-1310FRA003477

PATIENT
  Age: 72 Year
  Sex: Male
  Weight: 78.5 kg

DRUGS (2)
  1. VORINOSTAT [Suspect]
     Indication: MYELODYSPLASTIC SYNDROME
     Dosage: 600 MG, QD
     Route: 048
     Dates: start: 20130921, end: 20130927
  2. AZACITIDINE [Suspect]
     Indication: MYELODYSPLASTIC SYNDROME
     Dosage: 135 MG, QD
     Route: 058
     Dates: start: 20130919, end: 20130923

REACTIONS (2)
  - Pyelonephritis [Recovered/Resolved]
  - Renal colic [Recovered/Resolved]
